FAERS Safety Report 6581926-X (Version None)
Quarter: 2010Q1

REPORT INFORMATION
  Report Type: 
  Country: None (occurrence: None)
  Receive Date: 20100215
  Receipt Date: 20100209
  Transmission Date: 20100710
  Serious: Yes (Hospitalization)
  Sender: FDA-Public Use
  Company Number: CN-BRACCO-000011

PATIENT
  Age: 80 Year
  Sex: Female

DRUGS (4)
  1. IOPAMIRO [Suspect]
     Indication: ARTERIOGRAM CORONARY
     Route: 013
     Dates: start: 20080508, end: 20080508
  2. IOPAMIRO [Suspect]
     Indication: HYPERTENSION
     Route: 013
     Dates: start: 20080508, end: 20080508
  3. IOPAMIRO [Suspect]
     Indication: CORONARY ARTERY DISEASE
     Route: 013
     Dates: start: 20080508, end: 20080508
  4. SODIUM CHLORIDE [Concomitant]
     Dosage: 200ML OF 10% NACI PER DAY FOR 6 DAYS
     Route: 041
     Dates: start: 20080509, end: 20080515

REACTIONS (5)
  - ASTHENIA [None]
  - BLOOD POTASSIUM DECREASED [None]
  - BLOOD SODIUM DECREASED [None]
  - NAUSEA [None]
  - VOMITING [None]
